FAERS Safety Report 5001620-6 (Version None)
Quarter: 2006Q2

REPORT INFORMATION
  Report Type: 
  Country: None (occurrence: None)
  Receive Date: 20060511
  Receipt Date: 20060511
  Transmission Date: 20061013
  Serious: No
  Sender: FDA-Public Use
  Company Number: None

PATIENT
  Sex: Male
  Weight: 85.2762 kg

DRUGS (12)
  1. TRAVOPROST 0.004% [Suspect]
     Indication: GLAUCOMA
     Dosage: 1 DROP OU QHS
     Dates: start: 20060201, end: 20060417
  2. COMBIVENT [Concomitant]
  3. AMIODARONE [Concomitant]
  4. CARVEDILOL [Concomitant]
  5. FLUNISOLIDE [Concomitant]
  6. FUROSEMIDE [Concomitant]
  7. LISINOPRIL [Concomitant]
  8. SPIRONOLACTONE [Concomitant]
  9. TAMSULOSIN HCL [Concomitant]
  10. TRAMADOL HCL [Concomitant]
  11. TRIAMCINOLONE ACETONIDE [Concomitant]
  12. COUMADIN NA [Concomitant]

REACTIONS (3)
  - EYE PRURITUS [None]
  - FOREIGN BODY SENSATION IN EYES [None]
  - OCULAR HYPERAEMIA [None]
